FAERS Safety Report 18843843 (Version 1)
Quarter: 2021Q1

REPORT INFORMATION
  Report Type: Spontaneous
  Country: US (occurrence: US)
  Receive Date: 20210203
  Receipt Date: 20210203
  Transmission Date: 20210419
  Serious: No
  Sender: FDA-Public Use
  Company Number: US-LEUCADIA PHARMACEUTICALS-2020LEU000368

PATIENT

DRUGS (1)
  1. VALRUBICIN [Suspect]
     Active Substance: VALRUBICIN
     Indication: PRODUCT USED FOR UNKNOWN INDICATION
     Route: 065

REACTIONS (2)
  - Bladder spasm [Unknown]
  - Bladder pain [Unknown]
